FAERS Safety Report 14739740 (Version 1)
Quarter: 2018Q2

REPORT INFORMATION
  Report Type: Spontaneous
  Country: US (occurrence: US)
  Receive Date: 20180410
  Receipt Date: 20180410
  Transmission Date: 20180711
  Serious: Yes (Hospitalization, Other)
  Sender: FDA-Public Use
  Company Number: US-ACCORD-065427

PATIENT
  Age: 67 Year
  Sex: Female

DRUGS (3)
  1. FLECAINIDE [Interacting]
     Active Substance: FLECAINIDE
     Indication: SINUS TACHYCARDIA
  2. AMITRIPTYLINE [Suspect]
     Active Substance: AMITRIPTYLINE
     Indication: DEPRESSION
  3. BUPROPION/BUPROPION HYDROCHLORIDE [Interacting]
     Active Substance: BUPROPION HYDROCHLORIDE
     Indication: DEPRESSION

REACTIONS (4)
  - Drug interaction [Unknown]
  - Electrocardiogram QT prolonged [Recovered/Resolved]
  - Hypoxia [None]
  - Arrhythmia [Recovered/Resolved]
